FAERS Safety Report 5021081-0 (Version None)
Quarter: 2006Q2

REPORT INFORMATION
  Report Type: 
  Country: None (occurrence: None)
  Receive Date: 20060606
  Receipt Date: 20060606
  Transmission Date: 20061013
  Serious: Yes (Life-Threatening, Hospitalization)
  Sender: FDA-Public Use
  Company Number: None

PATIENT
  Age: 61 Year
  Sex: Male

DRUGS (8)
  1. DILTIAZEM HCL [Suspect]
     Indication: HYPOTENSION
     Dosage: DILTIAZEM-ER  120 MG   TWO TAB PER DAY   PO
     Route: 048
     Dates: start: 20060530, end: 20060601
  2. ATENOLOL [Concomitant]
  3. METFORMIN [Concomitant]
  4. COUMADIN [Concomitant]
  5. ALTACE [Concomitant]
  6. ZETIA [Concomitant]
  7. LIPITOR [Concomitant]
  8. ASPIRIN [Concomitant]

REACTIONS (5)
  - BRADYCARDIA [None]
  - DRUG DISPENSING ERROR [None]
  - HYPOTENSION [None]
  - INCORRECT DRUG DOSAGE FORM ADMINISTERED [None]
  - MEDICATION ERROR [None]
